FAERS Safety Report 9319605 (Version 5)
Quarter: 2013Q3

REPORT INFORMATION
  Report Type: Spontaneous
  Country: US (occurrence: US)
  Receive Date: 20130530
  Receipt Date: 20130724
  Transmission Date: 20140515
  Serious: Yes (Hospitalization)
  Sender: FDA-Public Use
  Company Number: US-GLAXOSMITHKLINE-A1011588A

PATIENT
  Age: 36 Year
  Sex: Female

DRUGS (1)
  1. FLOLAN [Suspect]
     Indication: PULMONARY ARTERIAL HYPERTENSION
     Dosage: 46.4NGKM CONTINUOUS
     Route: 042
     Dates: start: 20030325

REACTIONS (9)
  - Device related infection [Unknown]
  - Malaise [Unknown]
  - Vomiting [Unknown]
  - Gastric disorder [Unknown]
  - Sepsis [Not Recovered/Not Resolved]
  - Catheter removal [Recovered/Resolved]
  - Central venous catheterisation [Recovered/Resolved]
  - Joint swelling [Not Recovered/Not Resolved]
  - Local swelling [Not Recovered/Not Resolved]
